FAERS Safety Report 16265587 (Version 2)
Quarter: 2019Q2

REPORT INFORMATION
  Report Type: Spontaneous
  Country: US (occurrence: US)
  Receive Date: 20190502
  Receipt Date: 20190529
  Transmission Date: 20190711
  Serious: Yes (Other)
  Sender: FDA-Public Use
  Company Number: US-LEXICON PHARMACEUTICALS, INC-19-1606-00489

PATIENT
  Sex: Female

DRUGS (3)
  1. TELOTRISTAT ETHYL [Suspect]
     Active Substance: TELOTRISTAT ETHYL
     Indication: GASTROINTESTINAL NEOPLASM
     Route: 048
     Dates: start: 20190412
  2. LUTATHERA PEPTIDE [Concomitant]
  3. SANDOSTATIN [Concomitant]
     Active Substance: OCTREOTIDE ACETATE

REACTIONS (5)
  - Fatigue [Not Recovered/Not Resolved]
  - Radiotherapy [Unknown]
  - Nausea [Recovered/Resolved]
  - Off label use [Unknown]
  - Emotional distress [Unknown]

NARRATIVE: CASE EVENT DATE: 2019
